FAERS Safety Report 4311470-1 (Version None)
Quarter: 2004Q1

REPORT INFORMATION
  Report Type: 
  Country: None (occurrence: None)
  Receive Date: 20040304
  Receipt Date: 20011108
  Transmission Date: 20041129
  Serious: Yes (Other)
  Sender: FDA-Public Use
  Company Number: PHNU2001DE02620

PATIENT
  Age: 77 Year
  Sex: Female

DRUGS (1)
  1. LAMISIL [Suspect]
     Indication: TINEA PEDIS
     Dosage: 250 MG, QD
     Route: 048
     Dates: start: 20010313, end: 20010322

REACTIONS (5)
  - AGEUSIA [None]
  - ANOSMIA [None]
  - NAUSEA [None]
  - VOMITING [None]
  - WEIGHT DECREASED [None]
